FAERS Safety Report 5150772-6 (Version None)
Quarter: 2006Q4

REPORT INFORMATION
  Report Type: 
  Country: None (occurrence: None)
  Receive Date: 20061108
  Receipt Date: 20061026
  Transmission Date: 20070319
  Serious: Yes (Hospitalization)
  Sender: FDA-Public Use
  Company Number: 2006JP004187

PATIENT
  Age: 3 Year
  Sex: Male
  Weight: 43 kg

DRUGS (5)
  1. PROTOPIC [Suspect]
     Indication: DERMATITIS ATOPIC
     Dosage: 0.1 %, TOPICAL
     Route: 061
     Dates: start: 20060202, end: 20061012
  2. ALMETA(ALCLOMETASONE DIPROPIONATE) OINTMENT [Suspect]
     Indication: DERMATITIS ATOPIC
     Dosage: 1 G, UID/QD, TOPICAL
     Route: 061
     Dates: start: 20030110, end: 20061012
  3. PROTOPIC [Concomitant]
  4. CELTECT (OXATOMIDE) TABLET [Concomitant]
  5. ATARAX-P (HYDROXYZINE HYDROCHLORIDE) TABLET [Concomitant]

REACTIONS (4)
  - INFECTION [None]
  - KAPOSI'S VARICELLIFORM ERUPTION [None]
  - LYMPHADENOPATHY [None]
  - LYMPHOMA [None]
